FAERS Safety Report 5098021-1 (Version None)
Quarter: 2006Q3

REPORT INFORMATION
  Report Type: 
  Country: None (occurrence: None)
  Receive Date: 20060906
  Receipt Date: 20060322
  Transmission Date: 20061208
  Serious: No
  Sender: FDA-Public Use
  Company Number: US-GLAXOSMITHKLINE-A0598622A

PATIENT
  Age: 27 Year
  Sex: Female
  Weight: 68.2 kg

DRUGS (11)
  1. REQUIP [Suspect]
     Indication: RESTLESS LEGS SYNDROME
     Dosage: .25MG PER DAY
     Route: 048
     Dates: start: 20050401, end: 20050401
  2. ADVAIR DISKUS 100/50 [Concomitant]
     Indication: ASTHMA
     Route: 055
     Dates: start: 20040401
  3. ORTHO EVRA [Concomitant]
     Indication: MIGRAINE
     Route: 062
     Dates: start: 20050401
  4. AXERT [Concomitant]
     Indication: MIGRAINE
     Route: 048
     Dates: start: 20050401
  5. CLIMARA [Concomitant]
     Dosage: .1MG PER DAY
     Route: 062
     Dates: start: 20050401
  6. RELPAX [Concomitant]
     Indication: MIGRAINE
     Dosage: 40MG AS REQUIRED
     Route: 048
     Dates: start: 20050101
  7. LIDODERM [Concomitant]
     Route: 062
     Dates: start: 20050101
  8. DONNATAL EXTENTABS [Concomitant]
     Indication: IRRITABLE BOWEL SYNDROME
     Route: 048
     Dates: start: 20050101
  9. CLARINEX [Concomitant]
     Indication: MULTIPLE ALLERGIES
     Route: 048
     Dates: start: 20050101
  10. ATROVENT [Concomitant]
     Indication: ASTHMA
     Route: 055
     Dates: start: 20050101
  11. HYDROCODONE BITARTRATE + ACETAMINOPHEN [Concomitant]
     Indication: MOLE EXCISION
     Route: 048
     Dates: start: 20050101

REACTIONS (3)
  - AMNESIA [None]
  - DISTURBANCE IN ATTENTION [None]
  - SOMNOLENCE [None]
